FAERS Safety Report 6617450-5 (Version None)
Quarter: 2010Q1

REPORT INFORMATION
  Report Type: 
  Country: None (occurrence: None)
  Receive Date: 20100308
  Receipt Date: 20100115
  Transmission Date: 20100710
  Serious: Yes (Other)
  Sender: FDA-Public Use
  Company Number: FR-JNJFOC-20091207217

PATIENT
  Age: 85 Year
  Sex: Female

DRUGS (7)
  1. TAVANIC [Suspect]
     Indication: LOWER RESPIRATORY TRACT INFECTION BACTERIAL
     Route: 048
  2. ROCEPHIN [Suspect]
     Indication: PNEUMONIA BACTERIAL
     Route: 042
  3. AMOXICILLIN [Suspect]
     Indication: DRUG USE FOR UNKNOWN INDICATION
     Route: 065
  4. NORFLOXACIN [Suspect]
     Indication: DRUG USE FOR UNKNOWN INDICATION
     Route: 065
  5. SECTRAL [Concomitant]
     Indication: HYPERTENSION
     Route: 065
  6. TRIATEC [Concomitant]
     Indication: HYPERTENSION
     Route: 065
  7. LASILIX [Concomitant]
     Indication: HYPERTENSION
     Route: 065

REACTIONS (6)
  - CYTOLYTIC HEPATITIS [None]
  - HYPERSENSITIVITY [None]
  - PURPURA [None]
  - PYREXIA [None]
  - RASH GENERALISED [None]
  - SKIN TEST NEGATIVE [None]
